FAERS Safety Report 6658107-4 (Version None)
Quarter: 2010Q1

REPORT INFORMATION
  Report Type: 
  Country: None (occurrence: None)
  Receive Date: 20100330
  Receipt Date: 20100324
  Transmission Date: 20100710
  Serious: Yes (Death, Hospitalization, Other)
  Sender: FDA-Public Use
  Company Number: KR-ELI_LILLY_AND_COMPANY-KR201003006764

PATIENT
  Age: 51 Year
  Sex: Female

DRUGS (2)
  1. HUMALOG MIX 75/25 [Suspect]
     Indication: DIABETES MELLITUS
     Dosage: 18 IU, EACH MORNING
     Route: 058
     Dates: start: 20091216
  2. HUMALOG MIX 75/25 [Suspect]
     Dosage: 12 IU, EACH EVENING
     Route: 058
     Dates: start: 20091216

REACTIONS (2)
  - COMA HEPATIC [None]
  - HEPATIC CIRRHOSIS [None]
